FAERS Safety Report 6657239-4 (Version None)
Quarter: 2010Q1

REPORT INFORMATION
  Report Type: 
  Country: None (occurrence: None)
  Receive Date: 20100317
  Receipt Date: 20091214
  Transmission Date: 20100710
  Serious: No
  Sender: FDA-Public Use
  Company Number: DSA_41956_2009

PATIENT
  Sex: Female

DRUGS (6)
  1. XENAZINE [Suspect]
     Indication: HUNTINGTON'S CHOREA
     Dosage: 25 MG BID ORAL
     Route: 048
     Dates: start: 20090101
  2. KLONOPIN [Concomitant]
  3. ELAVIL [Concomitant]
  4. SINEMET CR [Concomitant]
  5. LEVOTHYROXINE [Concomitant]
  6. ISOSORBIDE [Concomitant]

REACTIONS (1)
  - INSOMNIA [None]
